FAERS Safety Report 13078023 (Version 2)
Quarter: 2017Q1

REPORT INFORMATION
  Report Type: Spontaneous
  Country: FR (occurrence: FR)
  Receive Date: 20170102
  Receipt Date: 20170120
  Transmission Date: 20170428
  Serious: Yes (Hospitalization, Other)
  Sender: FDA-Public Use
  Company Number: FR-AMGEN-FRASP2016185094

PATIENT
  Age: 54 Year
  Sex: Female

DRUGS (10)
  1. NAVELBINE [Suspect]
     Active Substance: VINORELBINE TARTRATE
     Indication: BREAST CANCER
     Dosage: UNK UNK, CYCLICAL (1 CYCLE)
     Route: 065
     Dates: start: 20161122
  2. CARDENSIEL [Concomitant]
     Active Substance: BISOPROLOL FUMARATE
     Dosage: UNK
  3. PROCORALAN [Concomitant]
     Active Substance: IVABRADINE
     Dosage: UNK
  4. COVERSYL [Concomitant]
     Active Substance: PERINDOPRIL
     Dosage: UNK
  5. ESOMEPRAZOLE [Concomitant]
     Active Substance: ESOMEPRAZOLE
     Dosage: UNK
  6. LEXOMIL [Concomitant]
     Active Substance: BROMAZEPAM
     Dosage: UNK
  7. HERCEPTIN [Suspect]
     Active Substance: TRASTUZUMAB
     Indication: BREAST CANCER
     Dosage: UNK UNK, CYCLICAL (1 CYCLE)
     Route: 065
     Dates: start: 20161102
  8. DEBRIDAT [Concomitant]
     Active Substance: TRIMEBUTINE MALEATE
     Dosage: UNK
  9. FILGRASTIM [Suspect]
     Active Substance: FILGRASTIM
     Indication: PRODUCT USED FOR UNKNOWN INDICATION
     Dosage: UNK
     Route: 065
  10. INNOHEP [Concomitant]
     Active Substance: TINZAPARIN SODIUM
     Dosage: UNK

REACTIONS (2)
  - Off label use [Unknown]
  - Ileus [Recovering/Resolving]
